FAERS Safety Report 5026532-3 (Version None)
Quarter: 2006Q2

REPORT INFORMATION
  Report Type: 
  Country: None (occurrence: None)
  Receive Date: 20060613
  Receipt Date: 20060613
  Transmission Date: 20061013
  Serious: Yes (Hospitalization)
  Sender: FDA-Public Use
  Company Number: None

PATIENT
  Sex: Male
  Weight: 52.6173 kg

DRUGS (2)
  1. ERBITUX [Suspect]
     Indication: NEOPLASM MALIGNANT
     Dosage: 430/ WEEK IV
     Route: 042
     Dates: start: 20060419
  2. ALIMTA [Suspect]
     Dosage: 602 / 3 WEEKS IV
     Route: 042
     Dates: start: 20060426

REACTIONS (3)
  - DEHYDRATION [None]
  - DYSPHAGIA [None]
  - FATIGUE [None]
